FAERS Safety Report 8032143 (Version 3)
Quarter: 2014Q1

REPORT INFORMATION
  Report Type: Spontaneous
  Country: US (occurrence: US)
  Receive Date: 20110713
  Receipt Date: 20140206
  Transmission Date: 20141002
  Serious: Yes (Hospitalization)
  Sender: FDA-Public Use
  Company Number: US-RANBAXY-2011US-45764

PATIENT
  Age: 35 Year
  Sex: Female

DRUGS (7)
  1. RISPERIDONE [Suspect]
     Indication: AGITATION
     Dosage: 4 MG, TID
     Route: 048
  2. OLANZAPINE [Suspect]
     Indication: AGITATION
     Dosage: 20 MG, BID
     Route: 048
  3. PERPHENAZINE [Suspect]
     Indication: AGITATION
     Dosage: 16 MG, TID
     Route: 048
  4. HALOPERIDOL [Suspect]
     Indication: AGITATION
     Dosage: 5 MG, PRN
     Route: 065
  5. BENZATROPINE [Suspect]
     Indication: EXTRAPYRAMIDAL DISORDER
     Dosage: 1MG TID
     Route: 048
  6. LITHIUM CARBONATE [Concomitant]
     Indication: AGITATION
     Dosage: 600 MG, BID
     Route: 048
  7. VALPROIC ACID [Concomitant]
     Indication: AGITATION
     Dosage: 1500 MG, QD
     Route: 048

REACTIONS (1)
  - Ileus paralytic [Recovered/Resolved]
